FAERS Safety Report 7576621-4 (Version None)
Quarter: 2011Q2

REPORT INFORMATION
  Report Type: 
  Country: None (occurrence: None)
  Receive Date: 20110628
  Receipt Date: 20110621
  Transmission Date: 20111010
  Serious: Yes (Death, Hospitalization)
  Sender: FDA-Public Use
  Company Number: IT-ELI_LILLY_AND_COMPANY-IT201106003988

PATIENT
  Age: 76 Year
  Sex: Male

DRUGS (7)
  1. METFORAL [Concomitant]
     Dosage: 850 MG, BID
     Dates: start: 20021113
  2. ALLOPURINOL [Concomitant]
     Dosage: 300 MG, UNK
     Dates: start: 20031017
  3. BYETTA [Suspect]
     Dosage: 10 UG, BID
     Route: 058
     Dates: start: 20080312, end: 20110410
  4. PROTON PUMP INHIBITORS [Concomitant]
  5. PLAUNAC [Concomitant]
     Dosage: 10 MG, UNK
     Dates: start: 20100118
  6. SIMVASTATIN [Concomitant]
     Dosage: 40 MG, UNK
     Dates: start: 20020308
  7. BYETTA [Suspect]
     Indication: TYPE 2 DIABETES MELLITUS
     Dosage: 5 UG, BID
     Route: 058

REACTIONS (2)
  - BILE DUCT CANCER [None]
  - MUSCULOSKELETAL PAIN [None]
